FAERS Safety Report 5980081-4 (Version None)
Quarter: 2008Q4

REPORT INFORMATION
  Report Type: 
  Country: None (occurrence: None)
  Receive Date: 20081128
  Receipt Date: 20081114
  Transmission Date: 20090506
  Serious: Yes (Hospitalization, Other)
  Sender: FDA-Public Use
  Company Number: GXKR2008GB10966

PATIENT
  Age: 55 Year
  Sex: Female

DRUGS (1)
  1. CO-AMOXICLAV (NGX) (AMOXICILLIN, CLAVULANATE) [Suspect]
     Indication: PNEUMONIA
     Dosage: 375 MG, ONCE/SINGLE, ORAL
     Route: 048

REACTIONS (9)
  - ABNORMAL BEHAVIOUR [None]
  - ACUTE PSYCHOSIS [None]
  - AGITATION [None]
  - CONFUSIONAL STATE [None]
  - DELUSION [None]
  - DISORIENTATION [None]
  - HALLUCINATION, VISUAL [None]
  - PNEUMONIA [None]
  - SPEECH DISORDER [None]
